FAERS Safety Report 5120098-5 (Version None)
Quarter: 2006Q4

REPORT INFORMATION
  Report Type: 
  Country: None (occurrence: None)
  Receive Date: 20061004
  Receipt Date: 20060726
  Transmission Date: 20070319
  Serious: Yes (Other)
  Sender: FDA-Public Use
  Company Number: US-SP-2006-01927

PATIENT
  Age: 50 Year
  Sex: Female

DRUGS (3)
  1. TUBERSOL [Suspect]
     Indication: TUBERCULIN TEST
     Route: 023
     Dates: start: 20060725
  2. VITAMINS [Concomitant]
  3. FIBER [Concomitant]

REACTIONS (13)
  - ASTHENIA [None]
  - DIZZINESS [None]
  - DYSKINESIA [None]
  - FEELING HOT [None]
  - HYPERHIDROSIS [None]
  - HYPOTENSION [None]
  - INJECTION SITE ERYTHEMA [None]
  - INJECTION SITE PRURITUS [None]
  - INJECTION SITE REACTION [None]
  - INJECTION SITE SWELLING [None]
  - NYSTAGMUS [None]
  - SINUSITIS [None]
  - SYNCOPE VASOVAGAL [None]
